FAERS Safety Report 11498036 (Version 1)
Quarter: 2015Q3

REPORT INFORMATION
  Report Type: Spontaneous
  Country: JP (occurrence: JP)
  Receive Date: 20150911
  Receipt Date: 20150911
  Transmission Date: 20151125
  Serious: Yes (Hospitalization, Other)
  Sender: FDA-Public Use
  Company Number: JP-GILEAD-2014-0118893

PATIENT
  Age: 65 Year
  Sex: Male
  Weight: 44 kg

DRUGS (2)
  1. ADEFOVIR DIPIVOXIL. [Suspect]
     Active Substance: ADEFOVIR DIPIVOXIL
     Indication: CHRONIC HEPATITIS B
     Route: 048
  2. LAMIVUDINE. [Suspect]
     Active Substance: LAMIVUDINE
     Indication: CHRONIC HEPATITIS B
     Dosage: UNK
     Route: 048

REACTIONS (15)
  - Fracture pain [Unknown]
  - Fanconi syndrome acquired [Unknown]
  - Acquired aminoaciduria [Unknown]
  - Multiple fractures [Unknown]
  - Pain in extremity [Unknown]
  - Hyperphosphatasaemia [Recovering/Resolving]
  - Femoral neck fracture [Unknown]
  - Rib fracture [Unknown]
  - Gait disturbance [Unknown]
  - Chest pain [Unknown]
  - Osteomalacia [Unknown]
  - Hepatitis B DNA increased [Unknown]
  - Bone scan abnormal [Unknown]
  - Hypophosphataemia [Recovered/Resolved]
  - Glucose urine [Unknown]
